FAERS Safety Report 6785209-4 (Version None)
Quarter: 2010Q2

REPORT INFORMATION
  Report Type: 
  Country: None (occurrence: None)
  Receive Date: 20100622
  Receipt Date: 20100622
  Transmission Date: 20101027
  Serious: Yes (Hospitalization)
  Sender: FDA-Public Use
  Company Number: None

PATIENT
  Age: 80 Year
  Sex: Female
  Weight: 67.5 kg

DRUGS (14)
  1. TRAMADOL HCL [Suspect]
     Indication: PAIN
     Dosage: 1 TAB QID PRN PAIN PO (RECENT)
     Route: 048
  2. ACTONEL [Concomitant]
  3. NEXIUM [Concomitant]
  4. PHENYTOIN [Concomitant]
  5. METOPROLOL [Concomitant]
  6. PAROXETINE [Concomitant]
  7. XYRAL [Concomitant]
  8. VYTORIN [Concomitant]
  9. CA CARBONATE [Concomitant]
  10. APAP TAB [Concomitant]
  11. SENOCOT S [Concomitant]
  12. ADVAIR DISKUS 100/50 [Concomitant]
  13. LIDODERM [Concomitant]
  14. ASPIRIN [Concomitant]

REACTIONS (5)
  - BLOOD POTASSIUM INCREASED [None]
  - NAUSEA [None]
  - RETCHING [None]
  - URINARY TRACT INFECTION [None]
  - VOMITING [None]
